FAERS Safety Report 12110527 (Version 1)
Quarter: 2016Q1

REPORT INFORMATION
  Report Type: Spontaneous
  Country: FR (occurrence: FR)
  Receive Date: 20160224
  Receipt Date: 20160224
  Transmission Date: 20160526
  Serious: Yes (Hospitalization)
  Sender: FDA-Public Use
  Company Number: FR-PFIZER INC-2016105909

PATIENT
  Age: 88 Year
  Sex: Male

DRUGS (9)
  1. SPIRIVA [Concomitant]
     Active Substance: TIOTROPIUM BROMIDE MONOHYDRATE
     Dosage: UNK
  2. ONBREZ BREEZHALER [Concomitant]
     Active Substance: INDACATEROL
     Dosage: UNK
  3. BISOPROLOL FUMARATE. [Concomitant]
     Active Substance: BISOPROLOL FUMARATE
     Dosage: UNK
  4. TRIATEC /00885601/ [Concomitant]
     Active Substance: RAMIPRIL
     Dosage: UNK
  5. ATORVASTATIN [Concomitant]
     Active Substance: ATORVASTATIN
     Dosage: UNK
  6. CIPROFLOXACIN. [Interacting]
     Active Substance: CIPROFLOXACIN
     Indication: DYSPNOEA
     Dosage: 250 MG, 1X/DAY
     Route: 048
     Dates: start: 20160122, end: 20160201
  7. TAZOCILLINE [Suspect]
     Active Substance: PIPERACILLIN SODIUM\TAZOBACTAM SODIUM
     Indication: DYSPNOEA
     Dosage: 4 G, 3X/DAY
     Route: 042
     Dates: start: 20160120, end: 20160201
  8. PREVISCAN /00789001/ [Interacting]
     Active Substance: FLUINDIONE
     Indication: ATRIAL FIBRILLATION
     Dosage: 5 MG, 1X/DAY
     Route: 048
     Dates: end: 20160123
  9. LASILIX /00032601/ [Concomitant]
     Active Substance: FUROSEMIDE
     Dosage: UNK

REACTIONS (5)
  - Melaena [Recovering/Resolving]
  - Haematemesis [Recovering/Resolving]
  - Drug interaction [Not Recovered/Not Resolved]
  - International normalised ratio increased [Recovered/Resolved]
  - Anaemia [Not Recovered/Not Resolved]

NARRATIVE: CASE EVENT DATE: 20160123
